FAERS Safety Report 22126795 (Version 1)
Quarter: 2023Q1

REPORT INFORMATION
  Report Type: Spontaneous
  Country: US (occurrence: US)
  Receive Date: 20230322
  Receipt Date: 20230322
  Transmission Date: 20230417
  Serious: Yes (Life-Threatening, Hospitalization, Other)
  Sender: FDA-Public Use
  Company Number: US-FreseniusKabi-FK202303614

PATIENT
  Age: 80 Year
  Sex: Female

DRUGS (3)
  1. VANCOMYCIN [Suspect]
     Active Substance: VANCOMYCIN
     Indication: Prophylaxis
  2. VANCOMYCIN [Suspect]
     Active Substance: VANCOMYCIN
     Dosage: ONCE AGAIN, THE PATIENT WAS PROPHYLACTICALLY ADMINISTERED VANCOMYCIN
  3. CEFEPIME [Concomitant]
     Active Substance: CEFEPIME HYDROCHLORIDE
     Indication: Prophylaxis

REACTIONS (2)
  - Stress cardiomyopathy [Recovered/Resolved]
  - Vancomycin infusion reaction [Unknown]
